FAERS Safety Report 5664777-X (Version None)
Quarter: 2008Q1

REPORT INFORMATION
  Report Type: 
  Country: None (occurrence: None)
  Receive Date: 20080314
  Receipt Date: 20080304
  Transmission Date: 20080703
  Serious: Yes (Other)
  Sender: FDA-Public Use
  Company Number: NL-ROCHE-542084

PATIENT
  Age: 65 Year
  Sex: Male

DRUGS (3)
  1. XELODA [Suspect]
     Route: 065
     Dates: start: 20071122, end: 20071126
  2. ELOXATIN [Suspect]
     Route: 065
     Dates: start: 20071122, end: 20071126
  3. TEMAZEPAM [Concomitant]
     Dosage: DRUG NAME: TEMAZEPAMUM; TAKEN AS NECESSARY

REACTIONS (2)
  - ANXIETY [None]
  - DEPRESSION [None]
